FAERS Safety Report 13499738 (Version 3)
Quarter: 2018Q1

REPORT INFORMATION
  Report Type: Report from Study
  Country: US (occurrence: US)
  Receive Date: 20170501
  Receipt Date: 20180117
  Transmission Date: 20180508
  Serious: No
  Sender: FDA-Public Use
  Company Number: US-AMGEN-USASL2017052487

PATIENT
  Age: 74 Year
  Sex: Female

DRUGS (2)
  1. REPATHA [Suspect]
     Active Substance: EVOLOCUMAB
     Indication: BLOOD CHOLESTEROL INCREASED
     Dosage: 140 MG, Q2WK
     Route: 065
     Dates: start: 2017
  2. REPATHA [Suspect]
     Active Substance: EVOLOCUMAB
     Indication: HYPERCHOLESTEROLAEMIA

REACTIONS (11)
  - Oropharyngeal pain [Unknown]
  - Pain [Unknown]
  - Pruritus [Unknown]
  - Feeling abnormal [Unknown]
  - Mass [Unknown]
  - Finger deformity [Unknown]
  - Injection site bruising [Unknown]
  - Rhinorrhoea [Unknown]
  - Malaise [Unknown]
  - Intervertebral disc protrusion [Unknown]
  - Musculoskeletal pain [Unknown]

NARRATIVE: CASE EVENT DATE: 2017
